FAERS Safety Report 26061312 (Version 1)
Quarter: 2025Q4

REPORT INFORMATION
  Report Type: Spontaneous
  Country: US (occurrence: US)
  Receive Date: 20251118
  Receipt Date: 20251118
  Transmission Date: 20260118
  Serious: Yes (Hospitalization)
  Sender: FRESENIUS MEDICAL CARE
  Company Number: US-FMCRTG-FMC-2510-001726

PATIENT
  Age: 83 Year
  Sex: Female
  Weight: 92 kg

DRUGS (4)
  1. DELFLEX WITH DEXTROSE 1.5% LOW MAGNESIUM LOW CALCIUM [Suspect]
     Active Substance: CALCIUM CHLORIDE\DEXTROSE\MAGNESIUM CHLORIDE\SODIUM CHLORIDE\SODIUM LACTATE
     Indication: End stage renal disease
     Dosage: CCPD, 7X WEEK, CA 2.5 (MEQ/L) MG 0.5 (MEQ/L), # EXCHANGES 4, FILL VOL 2250 ML, LAST FILL VOL 1000 ML
     Route: 033
  2. DELFLEX WITH DEXTROSE 2.5% LOW MAGNESIUM LOW CALCIUM [Suspect]
     Active Substance: CALCIUM CHLORIDE\DEXTROSE\MAGNESIUM CHLORIDE\SODIUM CHLORIDE\SODIUM LACTATE
     Indication: End stage renal disease
     Dosage: CCPD, 7X WEEK, CA 2.5 (MEQ/L) MG 0.5 (MEQ/L), # EXCHANGES 4, FILL VOL 2250 ML, LAST FILL VOL 1000 ML
     Route: 033
  3. DELFLEX WITH DEXTROSE 4.25% LOW MAGNESIUM LOW CALCIUM [Suspect]
     Active Substance: CALCIUM CHLORIDE\DEXTROSE\MAGNESIUM CHLORIDE\SODIUM CHLORIDE\SODIUM LACTATE
     Indication: End stage renal disease
     Dosage: CCPD, 7X WEEK, CA 2.5 (MEQ/L) MG 0.5 (MEQ/L), # EXCHANGES 4, FILL VOL 2250 ML, LAST FILL VOL 1000 ML
     Route: 033
  4. ICODEXTRIN [Suspect]
     Active Substance: ICODEXTRIN
     Indication: End stage renal disease
     Dosage: CCPD, 7X WEEK, CA 2.5 (MEQ/L) MG 0.5 (MEQ/L), # EXCHANGES 4, FILL VOL 2250 ML, LAST FILL VOL 1000 ML

REACTIONS (1)
  - Peritonitis bacterial [Unknown]

NARRATIVE: CASE EVENT DATE: 20251017
